FAERS Safety Report 6678182-0 (Version None)
Quarter: 2010Q2

REPORT INFORMATION
  Report Type: 
  Country: None (occurrence: None)
  Receive Date: 20100408
  Receipt Date: 20100408
  Transmission Date: 20101027
  Serious: Yes (Hospitalization)
  Sender: FDA-Public Use
  Company Number: None

PATIENT
  Sex: Female
  Weight: 61 kg

DRUGS (2)
  1. ZOMETA [Suspect]
     Dosage: 3.5 MG
  2. VITAMIN D2 [Suspect]
     Dosage: 8800 MG

REACTIONS (11)
  - ABDOMINAL PAIN [None]
  - DISEASE PROGRESSION [None]
  - DIVERTICULITIS [None]
  - FIBROSIS [None]
  - LARGE INTESTINE PERFORATION [None]
  - LYMPHADENOPATHY [None]
  - METASTASES TO CENTRAL NERVOUS SYSTEM [None]
  - PELVIC ABSCESS [None]
  - PERITONITIS [None]
  - RENAL FAILURE [None]
  - SEPTIC SHOCK [None]
